FAERS Safety Report 8288991-2 (Version None)
Quarter: 2012Q2

REPORT INFORMATION
  Report Type: 
  Country: None (occurrence: None)
  Receive Date: 20120417
  Receipt Date: 20120405
  Transmission Date: 20120825
  Serious: Yes (Other)
  Sender: FDA-Public Use
  Company Number: CA-JNJFOC-20120201866

PATIENT
  Sex: Female
  Weight: 47.3 kg

DRUGS (9)
  1. NUVARING [Concomitant]
     Route: 065
  2. REMICADE [Suspect]
     Dosage: HAD 5 INFUSIONS TILL PRESENT
     Route: 042
  3. CLONIDINE [Concomitant]
     Route: 065
  4. REMICADE [Suspect]
     Indication: COLITIS ULCERATIVE
     Dosage: HAD 5 INFUSIONS TILL PRESENT
     Route: 042
  5. FENTANYL [Concomitant]
     Route: 065
  6. REMICADE [Suspect]
     Indication: CROHN'S DISEASE
     Dosage: 7 INFUSIONS TOTALLY
     Route: 042
  7. REMICADE [Suspect]
     Dosage: 7 INFUSIONS TOTALLY
     Route: 042
  8. TAPAZOLE [Concomitant]
     Route: 065
  9. CANNABIS [Concomitant]
     Route: 065

REACTIONS (2)
  - THYROID FUNCTION TEST ABNORMAL [None]
  - PALPITATIONS [None]
